FAERS Safety Report 19926598 (Version 1)
Quarter: 2021Q4

REPORT INFORMATION
  Report Type: Spontaneous
  Country: US (occurrence: US)
  Receive Date: 20211007
  Receipt Date: 20211007
  Transmission Date: 20220303
  Serious: No
  Sender: FDA-Public Use
  Company Number: US-INDIVIOR US-INDV-126040-2020

PATIENT
  Age: 40 Year
  Sex: Female

DRUGS (8)
  1. SUBOXONE [Suspect]
     Active Substance: BUPRENORPHINE HYDROCHLORIDE\NALOXONE HYDROCHLORIDE
     Indication: Drug dependence
     Dosage: 24 MILLIGRAM, UNK
     Route: 060
     Dates: start: 201411
  2. SUBOXONE [Suspect]
     Active Substance: BUPRENORPHINE HYDROCHLORIDE\NALOXONE HYDROCHLORIDE
     Dosage: 16 MILLIGRAM, UNK
     Route: 060
  3. SUBOXONE [Suspect]
     Active Substance: BUPRENORPHINE HYDROCHLORIDE\NALOXONE HYDROCHLORIDE
     Dosage: 8 MILLIGRAM, UNK
     Route: 060
  4. SUBOXONE [Suspect]
     Active Substance: BUPRENORPHINE HYDROCHLORIDE\NALOXONE HYDROCHLORIDE
     Dosage: 0.125 MILLIGRAM, UNK
     Route: 060
     Dates: start: 2020
  5. ALCOHOL [Suspect]
     Active Substance: ALCOHOL
     Indication: Product used for unknown indication
     Dosage: UNK
     Route: 065
  6. KLONOPIN [Concomitant]
     Active Substance: CLONAZEPAM
     Indication: Dermatillomania
     Dosage: UNK
     Route: 065
  7. KLONOPIN [Concomitant]
     Active Substance: CLONAZEPAM
     Indication: Anxiety disorder
     Dosage: UNK (DOSE WAS INCREASED)
     Route: 065
  8. KLONOPIN [Concomitant]
     Active Substance: CLONAZEPAM
     Indication: Panic disorder

REACTIONS (5)
  - Alcohol abuse [Unknown]
  - Intentional underdose [Unknown]
  - Wrong technique in product usage process [Unknown]
  - Drug effect less than expected [Unknown]
  - Drug interaction [Unknown]

NARRATIVE: CASE EVENT DATE: 20141101
